FAERS Safety Report 25039020 (Version 1)
Quarter: 2025Q1

REPORT INFORMATION
  Report Type: Spontaneous
  Country: US (occurrence: US)
  Receive Date: 20250305
  Receipt Date: 20250305
  Transmission Date: 20250409
  Serious: No
  Sender: DAIICHI
  Company Number: US-DAIICHI SANKYO, INC.-DS-2025-128578-USAA

PATIENT
  Age: 65 Year
  Sex: Female

DRUGS (1)
  1. ENHERTU [Suspect]
     Active Substance: FAM-TRASTUZUMAB DERUXTECAN-NXKI
     Indication: Non-small cell lung cancer
     Route: 042
     Dates: start: 202203

REACTIONS (5)
  - Porto-sinusoidal vascular disorder [Unknown]
  - Nodular regenerative hyperplasia [Unknown]
  - Portal hypertension [Unknown]
  - Splenomegaly [Unknown]
  - Intestinal varices [Unknown]

NARRATIVE: CASE EVENT DATE: 20230801
